FAERS Safety Report 6145835-2 (Version None)
Quarter: 2009Q2

REPORT INFORMATION
  Report Type: 
  Country: None (occurrence: None)
  Receive Date: 20090407
  Receipt Date: 20090324
  Transmission Date: 20091009
  Serious: Yes (Other)
  Sender: FDA-Public Use
  Company Number: FR-BAYER-200914159GPV

PATIENT
  Age: 43 Year
  Sex: Female

DRUGS (7)
  1. MIRENA [Suspect]
     Indication: DRUG USE FOR UNKNOWN INDICATION
     Route: 015
     Dates: start: 20080522, end: 20090311
  2. STRESAM [Concomitant]
     Indication: DRUG USE FOR UNKNOWN INDICATION
  3. REYATAZ 150 [Concomitant]
     Indication: DRUG USE FOR UNKNOWN INDICATION
  4. NORVIR 100 [Concomitant]
     Indication: DRUG USE FOR UNKNOWN INDICATION
  5. EPIVIR 300 [Concomitant]
     Indication: DRUG USE FOR UNKNOWN INDICATION
  6. VIREAD [Concomitant]
     Indication: DRUG USE FOR UNKNOWN INDICATION
  7. DEROXAT [Concomitant]
     Indication: DRUG USE FOR UNKNOWN INDICATION

REACTIONS (2)
  - MENINGIOMA [None]
  - MIGRAINE [None]
